FAERS Safety Report 6426431-6 (Version None)
Quarter: 2009Q4

REPORT INFORMATION
  Report Type: 
  Country: None (occurrence: None)
  Receive Date: 20091104
  Receipt Date: 20091022
  Transmission Date: 20100525
  Serious: No
  Sender: FDA-Public Use
  Company Number: PHHY2009JP31423

PATIENT
  Sex: Female

DRUGS (2)
  1. TEGRETOL [Suspect]
     Indication: TRIGEMINAL NEURALGIA
     Dosage: 600 MG/DAY
     Route: 048
     Dates: start: 20070823, end: 20090710
  2. ALINAMIN [Concomitant]
     Indication: TRIGEMINAL NEURALGIA
     Dosage: 75 MG
     Route: 048
     Dates: start: 20070823

REACTIONS (6)
  - ARTHRALGIA [None]
  - COLLAGEN DISORDER [None]
  - DRY SKIN [None]
  - MUSCLE TIGHTNESS [None]
  - MUSCULAR WEAKNESS [None]
  - RASH [None]
